FAERS Safety Report 4347637-6 (Version None)
Quarter: 2004Q2

REPORT INFORMATION
  Report Type: 
  Country: None (occurrence: None)
  Receive Date: 20040422
  Receipt Date: 20040412
  Transmission Date: 20050107
  Serious: Yes (Other)
  Sender: FDA-Public Use
  Company Number: 2004025134

PATIENT
  Age: 34 Year
  Sex: Female
  Weight: 49.8957 kg

DRUGS (1)
  1. NEURONTIN [Suspect]
     Indication: FACIAL PAIN
     Dosage: UNKNOWN, UNKNOWN
     Dates: start: 20040101

REACTIONS (4)
  - ANXIETY [None]
  - COGNITIVE DISORDER [None]
  - PANIC DISORDER [None]
  - WEIGHT INCREASED [None]
